FAERS Safety Report 9178694 (Version 1)
Quarter: 2013Q1

REPORT INFORMATION
  Report Type: Spontaneous
  Country: US (occurrence: US)
  Receive Date: 20130321
  Receipt Date: 20130321
  Transmission Date: 20140127
  Serious: Yes (Other)
  Sender: FDA-Public Use
  Company Number: US-JNJFOC-20130309879

PATIENT
  Age: 57 Year
  Sex: Female
  Weight: 105.69 kg

DRUGS (1)
  1. BENADRYL UNSPECIFIED [Suspect]
     Indication: HYPERSENSITIVITY
     Dosage: 1 TEASPOON
     Route: 048
     Dates: start: 20130121, end: 20130121

REACTIONS (4)
  - Hypoglycaemia [Recovered/Resolved]
  - Cold sweat [Recovered/Resolved]
  - Loss of consciousness [Recovered/Resolved]
  - Off label use [Unknown]
